FAERS Safety Report 9015151 (Version 1)
Quarter: 2013Q1

REPORT INFORMATION
  Report Type: Spontaneous
  Country: US (occurrence: US)
  Receive Date: 20130116
  Receipt Date: 20130116
  Transmission Date: 20140127
  Serious: Yes (Hospitalization, Other)
  Sender: FDA-Public Use
  Company Number: US-009507513-1301XAA004104

PATIENT
  Age: 67 Year
  Sex: Male

DRUGS (5)
  1. KIPRES [Suspect]
     Indication: ASTHMA
     Dosage: 10 MG, QD
     Route: 048
  2. SLO-BID [Suspect]
     Dosage: 200 MG, BID
     Route: 048
  3. IPD [Suspect]
     Dosage: 100 MG, TID
     Route: 048
  4. AMARYL [Suspect]
     Route: 048
  5. MUCOSTA [Suspect]
     Route: 048

REACTIONS (6)
  - Tonic convulsion [Unknown]
  - Sepsis [Unknown]
  - Obstructive airways disorder [Unknown]
  - Hypoxia [Unknown]
  - Hypoglycaemia [Unknown]
  - Dyspnoea [Unknown]
